FAERS Safety Report 8471099-0 (Version None)
Quarter: 2012Q2

REPORT INFORMATION
  Report Type: 
  Country: None (occurrence: None)
  Receive Date: 20120621
  Receipt Date: 20120612
  Transmission Date: 20120825
  Serious: Yes (Hospitalization)
  Sender: FDA-Public Use
  Company Number: FK201201625

PATIENT
  Age: 40 Year
  Sex: Male

DRUGS (1)
  1. CEFUROXIME [Suspect]
     Indication: PRODUCT USED FOR UNKNOWN INDICATION

REACTIONS (5)
  - HYPERSENSITIVITY [None]
  - MYOCARDIAL ISCHAEMIA [None]
  - ELECTROCARDIOGRAM ST SEGMENT ELEVATION [None]
  - KOUNIS SYNDROME [None]
  - ARTERIOSPASM CORONARY [None]
